FAERS Safety Report 18087512 (Version 1)
Quarter: 2020Q3

REPORT INFORMATION
  Report Type: Spontaneous
  Country: US (occurrence: US)
  Receive Date: 20200729
  Receipt Date: 20200729
  Transmission Date: 20201103
  Serious: Yes (Other)
  Sender: FDA-Public Use
  Company Number: US-COLLEGIUM PHARMACEUTICAL, INC.-US-2020COL000517

PATIENT
  Sex: Female
  Weight: 89.34 kg

DRUGS (13)
  1. NUCYNTA [Suspect]
     Active Substance: TAPENTADOL HYDROCHLORIDE
     Indication: INTERVERTEBRAL DISC DEGENERATION
  2. TRAMADOL. [Suspect]
     Active Substance: TRAMADOL
     Indication: PAIN
     Dosage: 50 MG, QID (ONE TABLET EVERY 6 HOURS PRN)
     Route: 065
     Dates: start: 20191120
  3. NUCYNTA [Suspect]
     Active Substance: TAPENTADOL HYDROCHLORIDE
     Indication: FIBROMYALGIA
  4. TRAMADOL. [Suspect]
     Active Substance: TRAMADOL
     Indication: FIBROMYALGIA
  5. TRAMADOL. [Suspect]
     Active Substance: TRAMADOL
     Indication: INTERVERTEBRAL DISC DEGENERATION
  6. NUCYNTA [Suspect]
     Active Substance: TAPENTADOL HYDROCHLORIDE
     Indication: RHEUMATOID ARTHRITIS
  7. NUCYNTA [Suspect]
     Active Substance: TAPENTADOL HYDROCHLORIDE
     Indication: PAIN
  8. TRAMADOL. [Suspect]
     Active Substance: TRAMADOL
     Indication: RHEUMATOID ARTHRITIS
  9. NALBUPHINE [Suspect]
     Active Substance: NALBUPHINE
     Indication: RHEUMATOID ARTHRITIS
  10. NALBUPHINE [Suspect]
     Active Substance: NALBUPHINE
     Indication: INTERVERTEBRAL DISC DEGENERATION
  11. NUCYNTA [Suspect]
     Active Substance: TAPENTADOL HYDROCHLORIDE
     Indication: POSTOPERATIVE ANALGESIA
     Dosage: 50 MG, PRN (ONE TABLET EVERY 4?6 HOURS PRN)
     Route: 065
     Dates: start: 201107
  12. NALBUPHINE [Suspect]
     Active Substance: NALBUPHINE
     Indication: PAIN
     Dosage: 1 ML, QID
     Route: 065
  13. NALBUPHINE [Suspect]
     Active Substance: NALBUPHINE
     Indication: FIBROMYALGIA

REACTIONS (3)
  - Altered state of consciousness [Unknown]
  - Drug ineffective [Unknown]
  - Constipation [Unknown]
